FAERS Safety Report 5707712-8 (Version None)
Quarter: 2008Q2

REPORT INFORMATION
  Report Type: 
  Country: None (occurrence: None)
  Receive Date: 20080417
  Receipt Date: 20080407
  Transmission Date: 20081010
  Serious: Yes (Other)
  Sender: FDA-Public Use
  Company Number: US-SP-2008-01004

PATIENT
  Age: 68 Year
  Sex: Female

DRUGS (2)
  1. BOTULISM AB [Suspect]
     Indication: BOTULISM
     Route: 065
     Dates: start: 20070620
  2. BOTULISM ANTITOXIN ABE [Suspect]
     Indication: BOTULISM
     Route: 065
     Dates: start: 20070620

REACTIONS (5)
  - ANAPHYLACTIC REACTION [None]
  - ANGIOEDEMA [None]
  - HYPOTENSION [None]
  - HYPOXIA [None]
  - RASH [None]
